FAERS Safety Report 7530676-1 (Version None)
Quarter: 2011Q2

REPORT INFORMATION
  Report Type: 
  Country: None (occurrence: None)
  Receive Date: 20110607
  Receipt Date: 20110531
  Transmission Date: 20111010
  Serious: Yes (Hospitalization, Other)
  Sender: FDA-Public Use
  Company Number: US-B.I. PHARMACEUTICALS,INC./RIDGEFIELD-2011-BP-06806BP

PATIENT
  Age: 88 Year
  Sex: Female

DRUGS (8)
  1. LOPRESSOR [Concomitant]
     Dosage: 100 MG
     Route: 048
  2. LASIX [Concomitant]
     Dosage: 40 MG
     Route: 048
  3. AVAPRO [Concomitant]
     Dosage: 300 MG
     Route: 048
  4. NORVASC [Concomitant]
     Dosage: 5 MG
     Route: 048
  5. LACTULOSE [Concomitant]
     Indication: CONSTIPATION
  6. PRADAXA [Suspect]
     Dosage: 300 MG
     Route: 048
  7. ZETIA [Concomitant]
     Dosage: 10 MG
     Route: 048
  8. LASIX [Concomitant]
     Dosage: 80 MG
     Route: 048

REACTIONS (4)
  - RENAL FAILURE ACUTE [None]
  - COAGULOPATHY [None]
  - EPISTAXIS [None]
  - CARDIAC FAILURE CONGESTIVE [None]
